FAERS Safety Report 15613624 (Version 1)
Quarter: 2018Q4

REPORT INFORMATION
  Report Type: Spontaneous
  Country: ZA (occurrence: ZA)
  Receive Date: 20181113
  Receipt Date: 20181113
  Transmission Date: 20190205
  Serious: Yes (Hospitalization)
  Sender: FDA-Public Use
  Company Number: ZA-NOVOPROD-631031

PATIENT
  Age: 68 Year
  Sex: Female

DRUGS (9)
  1. PLENISH-K [Concomitant]
     Active Substance: POTASSIUM CHLORIDE
  2. ELTROXIN [Concomitant]
     Active Substance: LEVOTHYROXINE
  3. PREDNISONE. [Concomitant]
     Active Substance: PREDNISONE
  4. TREPILINE                          /00002201/ [Concomitant]
     Active Substance: AMITRIPTYLINE
  5. ALPROZAM [Concomitant]
  6. ASPAVOR [Concomitant]
     Active Substance: ATORVASTATIN
  7. CALTRATE PLUS                      /01438001/ [Concomitant]
     Active Substance: CALCIUM\CHOLECALCIFEROL\COPPER\MAGNESIUM\MANGANESE\ZINC
  8. ESTROFEM [Suspect]
     Active Substance: ESTRADIOL CYPIONATE
     Indication: PRODUCT USED FOR UNKNOWN INDICATION
     Dosage: UNK
     Route: 048
  9. CARDICOR [Concomitant]
     Active Substance: BISOPROLOL

REACTIONS (1)
  - Eye operation [Unknown]

NARRATIVE: CASE EVENT DATE: 20181023
